FAERS Safety Report 8933220 (Version 2)
Quarter: 2012Q4

REPORT INFORMATION
  Report Type: 
  Country: AU (occurrence: AU)
  Receive Date: 20121129
  Receipt Date: 20121214
  Transmission Date: 20130627
  Serious: Yes (Death)
  Sender: FDA-Public Use
  Company Number: PHHY2012AU109307

PATIENT
  Sex: Female

DRUGS (1)
  1. TASIGNA [Suspect]
     Indication: CHRONIC MYELOID LEUKAEMIA
     Dosage: 400 mg
     Route: 048

REACTIONS (3)
  - Gastrooesophageal cancer [Fatal]
  - Gastrointestinal disorder [Fatal]
  - Second primary malignancy [Fatal]
